FAERS Safety Report 13288528 (Version 4)
Quarter: 2017Q2

REPORT INFORMATION
  Report Type: Spontaneous
  Country: US (occurrence: US)
  Receive Date: 20170302
  Receipt Date: 20170612
  Transmission Date: 20170830
  Serious: No
  Sender: FDA-Public Use
  Company Number: US-009507513-1702USA007301

PATIENT
  Age: 31 Year
  Sex: Female
  Weight: 159.18 kg

DRUGS (2)
  1. NEXPLANON [Suspect]
     Active Substance: ETONOGESTREL
     Dosage: 68 MG (1 ROD), EVERY THREE YEARS
     Route: 059
     Dates: start: 2016, end: 20170302
  2. NEXPLANON [Suspect]
     Active Substance: ETONOGESTREL
     Dosage: 68 MG (1 ROD), EVERY THREE YEARS
     Route: 059
     Dates: start: 201703

REACTIONS (2)
  - Device kink [Recovered/Resolved]
  - Obesity [Unknown]
